FAERS Safety Report 9718563 (Version 3)
Quarter: 2014Q3

REPORT INFORMATION
  Report Type: Spontaneous
  Country: US (occurrence: US)
  Receive Date: 20131127
  Receipt Date: 20140902
  Transmission Date: 20150326
  Serious: Yes (Hospitalization)
  Sender: FDA-Public Use
  Company Number: US-009507513-1311USA011406

PATIENT
  Sex: Female

DRUGS (1)
  1. NUVARING [Suspect]
     Active Substance: ETHINYL ESTRADIOL\ETONOGESTREL
     Indication: CONTRACEPTION
     Dosage: UNK
     Route: 067
     Dates: start: 20130123, end: 20130529

REACTIONS (6)
  - Hepatic vein thrombosis [Unknown]
  - Deep vein thrombosis [Unknown]
  - Hepatic haemorrhage [Unknown]
  - Anaemia [Unknown]
  - Coagulation factor VIII level increased [Unknown]
  - Thrombosis [Unknown]

NARRATIVE: CASE EVENT DATE: 201305
